FAERS Safety Report 5058543-6 (Version None)
Quarter: 2006Q3

REPORT INFORMATION
  Report Type: 
  Country: None (occurrence: None)
  Receive Date: 20060721
  Receipt Date: 20051212
  Transmission Date: 20061208
  Serious: No
  Sender: FDA-Public Use
  Company Number: US-AMGEN-KDL161302

PATIENT
  Age: 58 Year
  Sex: Female
  Weight: 78.1 kg

DRUGS (6)
  1. PROCRIT [Suspect]
     Indication: RENAL FAILURE CHRONIC
     Route: 058
     Dates: start: 20041001
  2. MEDICINALPRODUCT NOT SPECIFIED BY SENDER [Concomitant]
  3. MEDICINALPRODUCT NOT SPECIFIED BY SENDER [Concomitant]
  4. MEDICINALPRODUCT NOT SPECIFIED BY SENDER [Concomitant]
  5. MEDICINALPRODUCT NOT SPECIFIED BY SENDER [Concomitant]
  6. MEDICINALPRODUCT NOT SPECIFIED BY SENDER [Concomitant]

REACTIONS (2)
  - ACTIVITIES OF DAILY LIVING IMPAIRED [None]
  - INJECTION SITE PAIN [None]
